FAERS Safety Report 5326320-4 (Version None)
Quarter: 2007Q2

REPORT INFORMATION
  Report Type: 
  Country: None (occurrence: None)
  Receive Date: 20070514
  Receipt Date: 20070514
  Transmission Date: 20071010
  Serious: Yes (Other)
  Sender: FDA-Public Use
  Company Number: None

PATIENT
  Age: 11 Month
  Sex: Male
  Weight: 9.0719 kg

DRUGS (2)
  1. PROZAC [Suspect]
     Indication: DEPRESSION
     Dates: start: 20050802, end: 20060601
  2. ZOLOFT [Suspect]
     Indication: DEPRESSION
     Dates: start: 20060601, end: 20070226

REACTIONS (7)
  - ADVERSE EVENT [None]
  - COMPLEX PARTIAL SEIZURES [None]
  - DEVELOPMENTAL DELAY [None]
  - DRUG EXPOSURE DURING PREGNANCY [None]
  - DRUG EXPOSURE VIA BREAST MILK [None]
  - PREGNANCY [None]
  - PSYCHOMOTOR SKILLS IMPAIRED [None]
